FAERS Safety Report 18368664 (Version 2)
Quarter: 2020Q4

REPORT INFORMATION
  Report Type: Spontaneous
  Country: US (occurrence: US)
  Receive Date: 20201011
  Receipt Date: 20201103
  Transmission Date: 20210114
  Serious: No
  Sender: FDA-Public Use
  Company Number: US-ASTRAZENECA-2020SF24643

PATIENT
  Age: 26364 Day
  Sex: Male

DRUGS (6)
  1. BYDUREON BCISE [Suspect]
     Active Substance: EXENATIDE
     Route: 058
     Dates: start: 20120409
  2. BYDUREON BCISE [Suspect]
     Active Substance: EXENATIDE
     Dosage: 2 MONTHLY
     Route: 058
     Dates: start: 20120409
  3. BYDUREON [Concomitant]
     Active Substance: EXENATIDE
     Route: 058
  4. BYDUREON BCISE [Suspect]
     Active Substance: EXENATIDE
     Route: 058
     Dates: start: 20120409
  5. BYDUREON BCISE [Suspect]
     Active Substance: EXENATIDE
     Dosage: 2 WEEK
     Route: 058
     Dates: start: 20120409
  6. BYDUREON [Concomitant]
     Active Substance: EXENATIDE
     Route: 058

REACTIONS (3)
  - Incorrect dose administered by device [Unknown]
  - Device malfunction [Unknown]
  - Device leakage [Unknown]

NARRATIVE: CASE EVENT DATE: 20200914
